FAERS Safety Report 7485148-X (Version None)
Quarter: 2011Q2

REPORT INFORMATION
  Report Type: 
  Country: None (occurrence: None)
  Receive Date: 20110517
  Receipt Date: 20101130
  Transmission Date: 20111010
  Serious: No
  Sender: FDA-Public Use
  Company Number: US-BAYER-2010-002487

PATIENT
  Age: 73 Year
  Sex: Female
  Weight: 86.168 kg

DRUGS (2)
  1. ZIAC [Concomitant]
  2. ALEVE (CAPLET) [Suspect]
     Indication: ARTHRALGIA
     Dosage: 440 MG, BID

REACTIONS (1)
  - ARTHRALGIA [None]
